FAERS Safety Report 20622868 (Version 1)
Quarter: 2022Q1

REPORT INFORMATION
  Report Type: Spontaneous
  Country: US (occurrence: US)
  Receive Date: 20220322
  Receipt Date: 20220322
  Transmission Date: 20220424
  Serious: No
  Sender: FDA-Public Use
  Company Number: US-ALLERGAN-2203115US

PATIENT
  Age: 37 Year
  Sex: Female

DRUGS (1)
  1. LATISSE [Suspect]
     Active Substance: BIMATOPROST
     Indication: Growth of eyelashes
     Dosage: UNK, QD
     Route: 061
     Dates: start: 20220108, end: 20220110

REACTIONS (3)
  - Eyelid thickening [Unknown]
  - Eyelid irritation [Unknown]
  - Eyelid rash [Recovered/Resolved]

NARRATIVE: CASE EVENT DATE: 20220108
